FAERS Safety Report 24226617 (Version 1)
Quarter: 2024Q3

REPORT INFORMATION
  Report Type: Spontaneous
  Country: US (occurrence: US)
  Receive Date: 20240820
  Receipt Date: 20240820
  Transmission Date: 20241016
  Serious: No
  Sender: REGENERON
  Company Number: US-REGENERON PHARMACEUTICALS, INC.-2023-118386

PATIENT
  Sex: Female

DRUGS (13)
  1. PRALUENT [Suspect]
     Active Substance: ALIROCUMAB
     Indication: Hypercholesterolaemia
     Dosage: 150 MG, Q2W
     Route: 058
  2. ASPIRIN [Concomitant]
     Active Substance: ASPIRIN
     Indication: Product used for unknown indication
     Dosage: 81 MG
     Route: 065
  3. VITAMIN D NOS [Concomitant]
     Active Substance: CHOLECALCIFEROL\ERGOCALCIFEROL
     Indication: Product used for unknown indication
     Route: 065
  4. B COMPLEX WITH FOLIC ACID [Concomitant]
     Indication: Product used for unknown indication
     Route: 065
  5. LEVOTHYROXINE [Concomitant]
     Active Substance: LEVOTHYROXINE\LEVOTHYROXINE SODIUM
     Indication: Product used for unknown indication
     Dosage: 100 UG, QD
     Route: 065
  6. CLOPIDOGREL [Concomitant]
     Active Substance: CLOPIDOGREL BISULFATE
     Indication: Product used for unknown indication
     Dosage: 75 MG
     Route: 065
  7. DULOXETINE [Concomitant]
     Active Substance: DULOXETINE
     Indication: Product used for unknown indication
     Dosage: 30-60 MG
     Route: 065
  8. LABETALOL [Concomitant]
     Active Substance: LABETALOL\LABETALOL HYDROCHLORIDE
     Indication: Product used for unknown indication
     Dosage: 100 MG, BID
     Route: 065
  9. MIDODRINE [Concomitant]
     Active Substance: MIDODRINE
     Indication: Product used for unknown indication
     Dosage: 5 MG, BID
     Route: 065
  10. ISOSORBIDE [Concomitant]
     Active Substance: ISOSORBIDE
     Indication: Product used for unknown indication
     Dosage: 60 MG
     Route: 065
  11. METFORMIN [Concomitant]
     Active Substance: METFORMIN HYDROCHLORIDE
     Indication: Product used for unknown indication
     Dosage: 500 MG, BID
     Route: 065
  12. D MANNOSE [Concomitant]
     Indication: Urinary tract infection
     Route: 065
  13. PURELAX [Concomitant]
     Active Substance: POLYETHYLENE GLYCOL 3350
     Indication: Product used for unknown indication
     Route: 065

REACTIONS (2)
  - Injection site pain [Unknown]
  - Product preparation error [Unknown]

NARRATIVE: CASE EVENT DATE: 20231005
